FAERS Safety Report 6679828-3 (Version None)
Quarter: 2010Q2

REPORT INFORMATION
  Report Type: 
  Country: None (occurrence: None)
  Receive Date: 20100413
  Receipt Date: 20090323
  Transmission Date: 20101027
  Serious: No
  Sender: FDA-Public Use
  Company Number: AR-ASTRAZENECA-2009UW07632

PATIENT
  Age: 64 Year
  Sex: Female

DRUGS (2)
  1. PRENORMINE [Suspect]
     Route: 048
  2. PRENORETIC [Suspect]
     Indication: HYPERTENSION
     Route: 048
     Dates: start: 20090301, end: 20090320

REACTIONS (3)
  - DRUG DISPENSING ERROR [None]
  - OEDEMA PERIPHERAL [None]
  - RASH [None]
